FAERS Safety Report 6812761-2 (Version None)
Quarter: 2010Q3

REPORT INFORMATION
  Report Type: 
  Country: None (occurrence: None)
  Receive Date: 20100701
  Receipt Date: 20100616
  Transmission Date: 20110219
  Serious: Yes (Other)
  Sender: FDA-Public Use
  Company Number: A0867852A

PATIENT
  Sex: Female
  Weight: 85 kg

DRUGS (5)
  1. AVANDIA [Suspect]
     Dosage: 1TAB PER DAY
     Route: 048
     Dates: start: 20100313, end: 20100320
  2. PURAN T4 [Concomitant]
     Dosage: 1TAB PER DAY
     Route: 048
  3. RIVOTRIL [Concomitant]
     Dosage: 3TAB AT NIGHT
     Route: 048
     Dates: start: 19930101
  4. METFORMIN HCL [Concomitant]
     Dosage: 1TAB PER DAY
     Route: 048
  5. SUPPLEMENT [Concomitant]
     Dosage: 2U TWICE PER DAY

REACTIONS (3)
  - CONSTIPATION [None]
  - FAECES HARD [None]
  - RECTAL HAEMORRHAGE [None]
